FAERS Safety Report 20693149 (Version 1)
Quarter: 2022Q2

REPORT INFORMATION
  Report Type: Spontaneous
  Country: FR (occurrence: FR)
  Receive Date: 20220410
  Receipt Date: 20220410
  Transmission Date: 20220721
  Serious: Yes (Death)
  Sender: FDA-Public Use
  Company Number: None

PATIENT
  Age: 36 Year
  Sex: Male
  Weight: 66 kg

DRUGS (2)
  1. NOREPINEPHRINE [Interacting]
     Active Substance: NOREPINEPHRINE
     Indication: Septic shock
     Route: 042
     Dates: start: 20220120, end: 20220307
  2. DESMOPRESSIN [Interacting]
     Active Substance: DESMOPRESSIN
     Indication: Septic shock
     Route: 042
     Dates: start: 20220121, end: 20220307

REACTIONS (3)
  - Pancreatitis [Fatal]
  - Gastrointestinal ischaemia [Fatal]
  - Drug interaction [Fatal]

NARRATIVE: CASE EVENT DATE: 20220121
